FAERS Safety Report 13337327 (Version 1)
Quarter: 2017Q1

REPORT INFORMATION
  Report Type: Spontaneous
  Country: US (occurrence: US)
  Receive Date: 20170314
  Receipt Date: 20170314
  Transmission Date: 20170428
  Serious: Yes (Hospitalization)
  Sender: FDA-Public Use
  Company Number: None

PATIENT
  Age: 71 Year
  Sex: Male

DRUGS (9)
  1. REVLIMID [Suspect]
     Active Substance: LENALIDOMIDE
     Indication: PLASMA CELL MYELOMA
     Dosage: FREQUENCY -  10MG DAILY X 21D/28D ORAL
     Route: 048
     Dates: start: 20170202, end: 20170205
  2. ZOLEDRONIC ACID [Concomitant]
     Active Substance: ZOLEDRONIC ACID
  3. MORPHINE [Concomitant]
     Active Substance: MORPHINE
  4. LENALIDOMIDE [Concomitant]
     Active Substance: LENALIDOMIDE
  5. TYLENOL [Concomitant]
     Active Substance: ACETAMINOPHEN
  6. DEXAMETHASONE. [Concomitant]
     Active Substance: DEXAMETHASONE
  7. FAMOTIDINE. [Concomitant]
     Active Substance: FAMOTIDINE
  8. BORTEZOMIB [Concomitant]
     Active Substance: BORTEZOMIB
  9. CALCIUM CARBONATE. [Concomitant]
     Active Substance: CALCIUM CARBONATE

REACTIONS (5)
  - Asthenia [None]
  - Lethargy [None]
  - Anaemia [None]
  - Acute kidney injury [None]
  - Pneumonia [None]

NARRATIVE: CASE EVENT DATE: 20170207
